FAERS Safety Report 9406429 (Version 1)
Quarter: 2013Q3

REPORT INFORMATION
  Report Type: Spontaneous
  Country: SE (occurrence: SE)
  Receive Date: 20130718
  Receipt Date: 20130718
  Transmission Date: 20140515
  Serious: Yes (Other)
  Sender: FDA-Public Use
  Company Number: SE-RANBAXY-2013RR-71328

PATIENT
  Age: 95 Year
  Sex: Female

DRUGS (1)
  1. ENALAPRIL [Suspect]
     Indication: PRODUCT USED FOR UNKNOWN INDICATION
     Dosage: UNK
     Route: 065

REACTIONS (5)
  - Angioedema [Unknown]
  - Anaphylactic reaction [Unknown]
  - Dyspnoea [Unknown]
  - Lip swelling [Unknown]
  - Dysphagia [Unknown]
